FAERS Safety Report 7458574-2 (Version None)
Quarter: 2011Q2

REPORT INFORMATION
  Report Type: 
  Country: None (occurrence: None)
  Receive Date: 20110504
  Receipt Date: 20110328
  Transmission Date: 20111010
  Serious: Yes (Other)
  Sender: FDA-Public Use
  Company Number: US-BAYER-200915931NA

PATIENT
  Age: 66 Year
  Sex: Male

DRUGS (10)
  1. PRILOSEC [Concomitant]
     Dosage: 20 MG, QD
     Route: 048
  2. HEPARIN [Concomitant]
  3. MUCOMYST [Concomitant]
  4. TOPROL-XL [Concomitant]
     Dosage: 50 MG, QD
     Route: 048
  5. NITROGLYCERIN [Concomitant]
  6. TRASYLOL [Suspect]
     Indication: CORONARY ARTERY BYPASS
     Dates: start: 20060731
  7. LIPITOR [Concomitant]
     Dosage: 40 MG, QD
     Route: 048
  8. METOPROLOL SUCCINATE [Concomitant]
     Dosage: UNK UNK, QD
     Route: 048
  9. IMDUR [Concomitant]
     Dosage: UNK UNK, QD
     Route: 048
  10. LORCET-HD [Concomitant]
     Dosage: 1-3 DAILY AS NEEDED FOR PAIN
     Route: 048

REACTIONS (10)
  - MULTI-ORGAN FAILURE [None]
  - INJURY [None]
  - EMOTIONAL DISTRESS [None]
  - ANHEDONIA [None]
  - RENAL FAILURE [None]
  - UNEVALUABLE EVENT [None]
  - STRESS [None]
  - ANXIETY [None]
  - FEAR [None]
  - PAIN [None]
